FAERS Safety Report 5093194-9 (Version None)
Quarter: 2006Q3

REPORT INFORMATION
  Report Type: 
  Country: None (occurrence: None)
  Receive Date: 20060825
  Receipt Date: 20060815
  Transmission Date: 20061208
  Serious: Yes (Other)
  Sender: FDA-Public Use
  Company Number: HQWYE578116AUG06

PATIENT
  Age: 31 Year
  Sex: Female

DRUGS (1)
  1. EFFEXOR XR [Suspect]
     Dosage: 75 MG 1X PER 1 DAY
     Dates: start: 20060515

REACTIONS (1)
  - SELF-INJURIOUS IDEATION [None]
